FAERS Safety Report 10949300 (Version 2)
Quarter: 2015Q1

REPORT INFORMATION
  Report Type: Spontaneous
  Country: US (occurrence: US)
  Receive Date: 20150324
  Receipt Date: 20150325
  Transmission Date: 20150721
  Serious: Yes (Hospitalization)
  Sender: FDA-Public Use
  Company Number: US-BAYER-2015-037796

PATIENT
  Age: 75 Year
  Sex: Male
  Weight: 98 kg

DRUGS (8)
  1. BAYER GENUINE ASPIRIN [Concomitant]
     Active Substance: ASPIRIN
  2. DILTIAZEM [Concomitant]
     Active Substance: DILTIAZEM
  3. IRON [Concomitant]
     Active Substance: IRON
  4. CEPHALEXIN. [Concomitant]
     Active Substance: CEPHALEXIN
  5. BACTINE PAIN RELIEVING CLEANSING ANESTHETIC SPRAY [Suspect]
     Active Substance: BENZALKONIUM CHLORIDE\LIDOCAINE HYDROCHLORIDE
     Indication: PAIN
     Dosage: 1 DF, ONCE
     Route: 061
     Dates: start: 201501, end: 201501
  6. FUROSEMIDE. [Concomitant]
     Active Substance: FUROSEMIDE
  7. PANTOPRAZOLE [Concomitant]
     Active Substance: PANTOPRAZOLE SODIUM
  8. CLONIDINE. [Concomitant]
     Active Substance: CLONIDINE

REACTIONS (4)
  - Blister [Not Recovered/Not Resolved]
  - Localised infection [Not Recovered/Not Resolved]
  - Skin exfoliation [Unknown]
  - Medication error [Unknown]

NARRATIVE: CASE EVENT DATE: 201501
